FAERS Safety Report 7415942-2 (Version None)
Quarter: 2011Q2

REPORT INFORMATION
  Report Type: 
  Country: None (occurrence: None)
  Receive Date: 20110414
  Receipt Date: 20110405
  Transmission Date: 20111010
  Serious: Yes (Other)
  Sender: FDA-Public Use
  Company Number: PHHY2011GB28197

PATIENT
  Sex: Male

DRUGS (9)
  1. OMEPRAZOLE [Suspect]
     Dosage: 20 MG, UNK
     Route: 048
  2. DILTIAZEM HCL [Concomitant]
  3. PROCTOSEDYL [Concomitant]
  4. TRAMADOL HCL [Concomitant]
     Dosage: 500 MG, UNK
  5. NICORANDIL [Concomitant]
  6. VITAMIN B COMPLEX CAP [Concomitant]
  7. MOVIPREP [Concomitant]
  8. PRAVASTATIN [Concomitant]
  9. ASPIRIN [Concomitant]

REACTIONS (3)
  - VOMITING [None]
  - HAEMATEMESIS [None]
  - MALAISE [None]
